FAERS Safety Report 8101518-0 (Version None)
Quarter: 2012Q1

REPORT INFORMATION
  Report Type: 
  Country: None (occurrence: None)
  Receive Date: 20120129
  Receipt Date: 20111011
  Transmission Date: 20120608
  Serious: No
  Sender: FDA-Public Use
  Company Number: US-ABBOTT-11P-163-0863190-00

PATIENT
  Sex: Male

DRUGS (2)
  1. HUMIRA [Suspect]
     Indication: PRODUCT USED FOR UNKNOWN INDICATION
     Route: 058
     Dates: start: 20100501, end: 20111010
  2. HUMIRA [Suspect]

REACTIONS (5)
  - OEDEMA GENITAL [None]
  - ERECTION INCREASED [None]
  - GENITAL PAIN [None]
  - PSORIASIS [None]
  - EJACULATION DISORDER [None]
